FAERS Safety Report 9314651 (Version 3)
Quarter: 2013Q4

REPORT INFORMATION
  Report Type: Spontaneous
  Country: FR (occurrence: FR)
  Receive Date: 20130529
  Receipt Date: 20131014
  Transmission Date: 20140711
  Serious: Yes (Other)
  Sender: FDA-Public Use
  Company Number: FR-BRISTOL-MYERS SQUIBB COMPANY-18928531

PATIENT
  Age: 6 Year
  Sex: Female

DRUGS (8)
  1. ETOPOPHOS [Suspect]
     Indication: ACUTE LYMPHOCYTIC LEUKAEMIA
     Dosage: FORMULATION: 100 MG FREEZE-DRIED PREPARATION FOR INJECTION ?LAST DOSE: 20FEB2013
     Route: 042
     Dates: start: 20130211, end: 20130220
  2. METHOTREXATE [Suspect]
     Indication: ACUTE LYMPHOCYTIC LEUKAEMIA
     Dosage: 03OT2012-11FB2013: 12MG?06DC2012-07DC2012: 100 MG / ML, SOLUTION FOR INJECTION 5110 MG I.V
     Route: 039
     Dates: start: 20121003
  3. ARACYTINE [Suspect]
     Indication: ACUTE LYMPHOCYTIC LEUKAEMIA
     Dosage: 100 MG POWDER+SOLVENT FOR SOLN FOR INJ?03OT2012-11FB2013: 25MG;?11FB2013-20FB2013: 31MG/D S.C
     Route: 039
     Dates: start: 20121003
  4. LANVIS [Suspect]
     Indication: ACUTE LYMPHOCYTIC LEUKAEMIA
     Dosage: 40 MG SCORED TABLET;?LAST DOSE: 03MAR2013
     Route: 048
     Dates: start: 20130212
  5. DOXORUBICINE [Suspect]
     Indication: ACUTE LYMPHOCYTIC LEUKAEMIA
     Dosage: LAST DOSE: 04JAN2013;?1 DF: 25 MBQ
     Route: 042
     Dates: start: 20130102
  6. KIDROLASE [Suspect]
     Dosage: LAST DOSE: 04JAN2013?1 DF: 10000 IU POWDER AND SOLVENT FOR SOLUTION FOR INJ,6200 MICRO G / KG
     Route: 030
     Dates: start: 20121003
  7. ELDISINE [Suspect]
     Dosage: ELDISINE 5 MG, POWDER FOR SOLUTION FOR INJECTION;?1 DF: 3 MBQ;?LAST DOSE:04JAN2013
     Route: 042
     Dates: start: 20130102
  8. HYDROCORTISONE [Concomitant]
     Indication: ACUTE LYMPHOCYTIC LEUKAEMIA
     Dosage: LAST DOSE: 11FEB2013;?100 MG PREPARATION FOR INJECTION
     Route: 039
     Dates: start: 20121003

REACTIONS (2)
  - Leukoencephalopathy [Recovered/Resolved with Sequelae]
  - Intracranial venous sinus thrombosis [Recovered/Resolved with Sequelae]
